FAERS Safety Report 16599882 (Version 3)
Quarter: 2020Q3

REPORT INFORMATION
  Report Type: Spontaneous
  Country: TR (occurrence: TR)
  Receive Date: 20190720
  Receipt Date: 20200706
  Transmission Date: 20201102
  Serious: Yes (Hospitalization)
  Sender: FDA-Public Use
  Company Number: TR-SUN PHARMACEUTICAL INDUSTRIES LTD-2019R1-214429

PATIENT
  Age: 4 Year
  Sex: Female

DRUGS (1)
  1. CLARITHROMYCIN. [Suspect]
     Active Substance: CLARITHROMYCIN
     Indication: RESPIRATORY TRACT INFECTION
     Dosage: (250 MG IN THE MORNING, 125 MG AT THE EVENING)
     Route: 048

REACTIONS (3)
  - Hoigne^s syndrome [Recovered/Resolved]
  - Restlessness [Recovered/Resolved]
  - Fear [Recovered/Resolved]
